FAERS Safety Report 8995895 (Version 3)
Quarter: 2014Q2

REPORT INFORMATION
  Report Type: Spontaneous
  Country: IT (occurrence: IT)
  Receive Date: 20130103
  Receipt Date: 20140502
  Transmission Date: 20141212
  Serious: Yes (Death)
  Sender: FDA-Public Use
  Company Number: IT-TEVA-378793USA

PATIENT
  Sex: Male
  Weight: 62 kg

DRUGS (5)
  1. BENDAMUSTINE [Suspect]
     Indication: PLASMA CELL MYELOMA
     Route: 042
  2. BORTEZOMIB [Suspect]
     Indication: PLASMA CELL MYELOMA
     Dates: end: 20110530
  3. DEXAMETHASONE [Suspect]
     Indication: PLASMA CELL MYELOMA
     Dosage: REGIMEN1
  4. ACYCLOVIR [Concomitant]
  5. SULFAMETHOXAZOLE/TRIMETHOPRIM [Concomitant]

REACTIONS (1)
  - Sudden death [Fatal]
